FAERS Safety Report 8063555-4 (Version None)
Quarter: 2012Q1

REPORT INFORMATION
  Report Type: 
  Country: None (occurrence: None)
  Receive Date: 20120123
  Receipt Date: 20120110
  Transmission Date: 20120608
  Serious: Yes (Other)
  Sender: FDA-Public Use
  Company Number: AU-ROCHE-1031827

PATIENT

DRUGS (1)
  1. METALYSE [Suspect]
     Indication: ISCHAEMIC STROKE
     Route: 042

REACTIONS (6)
  - NEUROLOGICAL DECOMPENSATION [None]
  - CARDIAC DISORDER [None]
  - RESPIRATORY DISORDER [None]
  - RENAL DISORDER [None]
  - GASTROINTESTINAL DISORDER [None]
  - INFECTION [None]
